FAERS Safety Report 9669130 (Version 2)
Quarter: 2013Q4

REPORT INFORMATION
  Report Type: Report from Study
  Country: JP (occurrence: JP)
  Receive Date: 20131105
  Receipt Date: 20131105
  Transmission Date: 20140711
  Serious: Yes (Hospitalization)
  Sender: FDA-Public Use
  Company Number: JP-PFIZER INC-2013233307

PATIENT
  Age: 47 Year
  Sex: Male
  Weight: 65.4 kg

DRUGS (9)
  1. XALKORI [Suspect]
     Indication: NON-SMALL CELL LUNG CANCER
     Dosage: 250 MG, 2X/DAY
     Dates: start: 20121029, end: 20121114
  2. PANVITAN [Concomitant]
     Dosage: 1 G, 1X/DAY
     Route: 048
     Dates: start: 20120726, end: 20130211
  3. PARIET [Concomitant]
     Dosage: 10 MG, 1X/DAY
     Route: 048
     Dates: start: 20120728, end: 20130211
  4. MEDICON [Concomitant]
     Dosage: 30 MG, 3X/DAY
     Route: 048
     Dates: start: 20120703, end: 20130211
  5. MUCODYNE [Concomitant]
     Dosage: 250 MG, 3X/DAY
     Route: 048
     Dates: start: 20120703, end: 20130211
  6. CODEINE PHOSPHATE [Concomitant]
     Dosage: 3 G, 3X/DAY
     Route: 048
     Dates: start: 20120724, end: 20130211
  7. CELESTAMINE [Concomitant]
     Dosage: 1 DF, 2X/DAY
     Route: 048
     Dates: start: 20120913, end: 20130211
  8. SYMBICORT [Concomitant]
     Dosage: 1 DF, 2X/DAY
     Dates: start: 20120913, end: 20130211
  9. ALLELOCK [Concomitant]
     Dosage: 5 MG, 2X/DAY
     Route: 048
     Dates: start: 20121002, end: 20130211

REACTIONS (1)
  - Interstitial lung disease [Recovered/Resolved with Sequelae]
